FAERS Safety Report 18769679 (Version 2)
Quarter: 2023Q1

REPORT INFORMATION
  Report Type: Report from Study
  Country: US (occurrence: US)
  Receive Date: 20210121
  Receipt Date: 20230110
  Transmission Date: 20230417
  Serious: Yes (Other)
  Sender: FDA-Public Use
  Company Number: US-PFIZER INC-2019417490

PATIENT
  Sex: Female

DRUGS (1)
  1. LYRICA [Suspect]
     Active Substance: PREGABALIN
     Indication: Product used for unknown indication
     Dosage: 75 MG, DAILY(SIG: TAKE 1 CAPSULE BY MOUTH DAILY AT BEDTIME) REGIMEN DOSE UNIT: MILLIGRAM
     Route: 048

REACTIONS (1)
  - Renal failure [Unknown]
